FAERS Safety Report 8474954-0 (Version None)
Quarter: 2012Q2

REPORT INFORMATION
  Report Type: 
  Country: None (occurrence: None)
  Receive Date: 20120628
  Receipt Date: 20120623
  Transmission Date: 20120825
  Serious: Yes (Other)
  Sender: FDA-Public Use
  Company Number: PHHY2012PS053813

PATIENT
  Age: 34 Year
  Sex: Female

DRUGS (3)
  1. TASIGNA [Suspect]
     Dosage: 400 MG, BID
     Route: 048
  2. TASIGNA [Suspect]
     Dosage: 200 MG, BID
     Route: 048
  3. TASIGNA [Suspect]
     Dosage: 200 MG, BID
     Route: 048
     Dates: start: 20120124

REACTIONS (1)
  - ELECTROCARDIOGRAM QT PROLONGED [None]
